FAERS Safety Report 9136869 (Version 1)
Quarter: 2013Q1

REPORT INFORMATION
  Report Type: Report from Study
  Country: US (occurrence: US)
  Receive Date: 20130304
  Receipt Date: 20130304
  Transmission Date: 20140127
  Serious: No
  Sender: FDA-Public Use
  Company Number: US-ABBOTT-12P-163-0961700-00

PATIENT
  Sex: Male
  Weight: 81.72 kg

DRUGS (6)
  1. ANDROGEL 1% [Suspect]
     Indication: BLOOD TESTOSTERONE DECREASED
     Dates: start: 201205, end: 20120630
  2. ASACOL [Concomitant]
     Indication: CROHN^S DISEASE
  3. POLYETHYLENE GLYCOL [Concomitant]
     Indication: CROHN^S DISEASE
  4. PRAVASTATIN [Concomitant]
     Indication: HYPERLIPIDAEMIA
  5. DOXAZOSIN [Concomitant]
     Indication: PROSTATIC DISORDER
  6. HYDROCODONE [Concomitant]
     Indication: PAIN

REACTIONS (1)
  - Muscle spasms [Recovered/Resolved]
